FAERS Safety Report 6855990-4 (Version None)
Quarter: 2010Q3

REPORT INFORMATION
  Report Type: 
  Country: None (occurrence: None)
  Receive Date: 20100719
  Receipt Date: 20100714
  Transmission Date: 20110219
  Serious: Yes (Hospitalization)
  Sender: FDA-Public Use
  Company Number: JP-EISAI INC.-E2020-06967-SPO-JP

PATIENT
  Age: 68 Year
  Sex: Female

DRUGS (2)
  1. ARICEPT [Suspect]
     Indication: DEMENTIA WITH LEWY BODIES
     Route: 048
     Dates: start: 20090507, end: 20090520
  2. ARICEPT [Suspect]
     Route: 048
     Dates: start: 20090521, end: 20090812

REACTIONS (1)
  - TORTICOLLIS [None]
